FAERS Safety Report 10769115 (Version 1)
Quarter: 2015Q1

REPORT INFORMATION
  Report Type: Spontaneous
  Country: FR (occurrence: FR)
  Receive Date: 20150206
  Receipt Date: 20150206
  Transmission Date: 20150721
  Serious: Yes (Other)
  Sender: FDA-Public Use
  Company Number: FR-TEVA-537754ISR

PATIENT
  Age: 49 Year
  Sex: Female

DRUGS (3)
  1. AZILECT [Suspect]
     Active Substance: RASAGILINE MESYLATE
     Indication: PARKINSON^S DISEASE
     Dosage: 3 MILLIGRAM DAILY;
     Route: 048
     Dates: start: 201212
  2. SINEMET [Suspect]
     Active Substance: CARBIDOPA\LEVODOPA
     Indication: PARKINSON^S DISEASE
     Dosage: 1.5 DOSAGE FORMS DAILY;
     Route: 048
     Dates: start: 201212
  3. SIFROL [Suspect]
     Active Substance: PRAMIPEXOLE
     Indication: PARKINSON^S DISEASE
     Dosage: 2.1  DAILY;
     Route: 048
     Dates: start: 201212

REACTIONS (4)
  - Swelling [Unknown]
  - Dysgeusia [Unknown]
  - Dry mouth [Unknown]
  - Micturition urgency [Unknown]

NARRATIVE: CASE EVENT DATE: 201412
